FAERS Safety Report 4802962-7 (Version None)
Quarter: 2005Q4

REPORT INFORMATION
  Report Type: 
  Country: None (occurrence: None)
  Receive Date: 20051013
  Receipt Date: 20051004
  Transmission Date: 20060501
  Serious: Yes (Death)
  Sender: FDA-Public Use
  Company Number: A-CH2005-10762

PATIENT
  Age: 25 Year
  Sex: Male
  Weight: 67 kg

DRUGS (3)
  1. BOSENTAN (BOSENTAN TABLET 125 MG) [Suspect]
     Indication: PULMONARY HYPERTENSION
     Dosage: 62.5 MG, BID, ORAL; 125 MG, BID, ORAL
     Route: 048
     Dates: start: 20050309, end: 20050408
  2. BOSENTAN (BOSENTAN TABLET 125 MG) [Suspect]
     Indication: PULMONARY HYPERTENSION
     Dosage: 62.5 MG, BID, ORAL; 125 MG, BID, ORAL
     Route: 048
     Dates: start: 20050409, end: 20050411
  3. WARFARIN SODIUM [Concomitant]

REACTIONS (4)
  - CONDITION AGGRAVATED [None]
  - DISEASE PROGRESSION [None]
  - PULMONARY HYPERTENSION [None]
  - VENOOCCLUSIVE DISEASE [None]
